FAERS Safety Report 7834626-X (Version None)
Quarter: 2011Q4

REPORT INFORMATION
  Report Type: 
  Country: None (occurrence: None)
  Receive Date: 20111024
  Receipt Date: 20101213
  Transmission Date: 20120403
  Serious: No
  Sender: FDA-Public Use
  Company Number: US-BAUSCH-2010BL007053

PATIENT
  Age: 61 Year
  Sex: Male

DRUGS (2)
  1. GLEEVEC [Concomitant]
     Indication: LEUKAEMIA
  2. NEOMYCIN AND POLYMYXIN B SULFATES AND HYDROCORT OTIC SUS USP [Suspect]
     Indication: EAR INFECTION
     Route: 001
     Dates: start: 20101106, end: 20101112

REACTIONS (2)
  - MEDICATION RESIDUE [None]
  - HYPOACUSIS [None]
